FAERS Safety Report 10414824 (Version 1)
Quarter: 2014Q2

REPORT INFORMATION
  Report Type: Spontaneous
  Country: US (occurrence: None)
  Receive Date: 20140604
  Receipt Date: 20140604
  Transmission Date: 20141212
  Serious: No
  Sender: FDA-Public Use
  Company Number: 163-POMAL-14034487

PATIENT
  Age: 67 Year
  Sex: Male
  Weight: 68.04 kg

DRUGS (6)
  1. POMALYST [Suspect]
     Indication: PLASMA CELL MYELOMA
     Route: 048
     Dates: start: 201402
  2. LOSARTAN (LOSARTAN) [Concomitant]
  3. PLAVIX (CLOPIDOGREL SULFATE) [Concomitant]
  4. CARVEDILOL (CARVEDILOL) [Concomitant]
  5. AGGRENOX ASASANTIN [Concomitant]
  6. COLACE (DOCUSATE SODIUM) [Concomitant]

REACTIONS (1)
  - Skin disorder [None]
